FAERS Safety Report 10571255 (Version 3)
Quarter: 2015Q3

REPORT INFORMATION
  Report Type: Report from Study
  Country: US (occurrence: US)
  Receive Date: 20141107
  Receipt Date: 20150709
  Transmission Date: 20151125
  Serious: Yes (Hospitalization, Other)
  Sender: FDA-Public Use
  Company Number: US-GILEAD-2014-0121505

PATIENT
  Age: 31 Year
  Sex: Male

DRUGS (3)
  1. AMBRISENTAN [Suspect]
     Active Substance: AMBRISENTAN
     Indication: PULMONARY HYPERTENSION
     Dosage: 10 MG, QD
     Route: 065
     Dates: start: 20100727
  2. SILDENAFIL. [Concomitant]
     Active Substance: SILDENAFIL
  3. AMBRISENTAN [Suspect]
     Active Substance: AMBRISENTAN
     Indication: HEART DISEASE CONGENITAL

REACTIONS (4)
  - Headache [Unknown]
  - Dyspnoea [Unknown]
  - Pulmonary hypertension [Unknown]
  - Palpitations [Unknown]
